FAERS Safety Report 11139066 (Version 1)
Quarter: 2015Q2

REPORT INFORMATION
  Report Type: Spontaneous
  Country: US (occurrence: US)
  Receive Date: 20150527
  Receipt Date: 20150527
  Transmission Date: 20150821
  Serious: No
  Sender: FDA-Public Use
  Company Number: US-BIOGENIDEC-2015BI071021

PATIENT

DRUGS (1)
  1. TECFIDERA [Suspect]
     Active Substance: DIMETHYL FUMARATE
     Indication: MULTIPLE SCLEROSIS

REACTIONS (7)
  - Hypersensitivity [Unknown]
  - Hyperaesthesia [Unknown]
  - Flushing [Unknown]
  - Adverse event [Unknown]
  - Pruritus [Unknown]
  - Skin warm [Unknown]
  - Burning sensation [Unknown]
